FAERS Safety Report 19773417 (Version 1)
Quarter: 2021Q3

REPORT INFORMATION
  Report Type: Report from Study
  Country: None (occurrence: US)
  Receive Date: 20210901
  Receipt Date: 20210901
  Transmission Date: 20211014
  Serious: Yes (Other)
  Sender: FDA-Public Use
  Company Number: US-ABBVIE-21K-163-4053869-00

PATIENT
  Age: 63 Year
  Sex: Female
  Weight: 81.72 kg

DRUGS (3)
  1. HUMIRA [Suspect]
     Active Substance: ADALIMUMAB
     Indication: RHEUMATOID ARTHRITIS
     Route: 058
     Dates: start: 2020, end: 20210707
  2. MODERNA COVID?19 VACCINE [Concomitant]
     Active Substance: CX-024414
     Route: 030
     Dates: start: 20210603, end: 20210603
  3. MODERNA COVID?19 VACCINE [Concomitant]
     Active Substance: CX-024414
     Indication: COVID-19 IMMUNISATION
     Dosage: MODERNA
     Route: 030
     Dates: start: 20210503, end: 20210503

REACTIONS (5)
  - Cerebral cyst [Not Recovered/Not Resolved]
  - Malaise [Unknown]
  - Abdominal discomfort [Not Recovered/Not Resolved]
  - Cardiac pacemaker insertion [Unknown]
  - Ocular icterus [Not Recovered/Not Resolved]

NARRATIVE: CASE EVENT DATE: 202102
